FAERS Safety Report 13063574 (Version 1)
Quarter: 2016Q4

REPORT INFORMATION
  Report Type: Spontaneous
  Country: US (occurrence: US)
  Receive Date: 20161227
  Receipt Date: 20161227
  Transmission Date: 20170207
  Serious: No
  Sender: FDA-Public Use
  Company Number: US-NOVEN PHARMACEUTICALS, INC.-US2016000015

PATIENT
  Sex: Female

DRUGS (3)
  1. MINIVELLE [Suspect]
     Active Substance: ESTRADIOL
     Indication: HOT FLUSH
     Dosage: UNK, UNKNOWN
     Route: 062
     Dates: start: 201510
  2. MINIVELLE [Suspect]
     Active Substance: ESTRADIOL
     Indication: PYREXIA
  3. MINIVELLE [Suspect]
     Active Substance: ESTRADIOL
     Indication: CHILLS

REACTIONS (3)
  - Product use issue [Unknown]
  - Chromaturia [Unknown]
  - Vaginal haemorrhage [Unknown]

NARRATIVE: CASE EVENT DATE: 2015
